FAERS Safety Report 19360070 (Version 2)
Quarter: 2021Q3

REPORT INFORMATION
  Report Type: Report from Study
  Country: CN (occurrence: CN)
  Receive Date: 20210602
  Receipt Date: 20210826
  Transmission Date: 20211014
  Serious: Yes (Hospitalization)
  Sender: FDA-Public Use
  Company Number: CN-ASTRAZENECA-2021A407533

PATIENT
  Age: 20984 Day
  Sex: Male
  Weight: 71 kg

DRUGS (49)
  1. ENTECAVIR. [Concomitant]
     Active Substance: ENTECAVIR
     Indication: CHRONIC HEPATITIS B
     Route: 048
     Dates: start: 20201119
  2. METHYLPREDNISOLONE. [Concomitant]
     Active Substance: METHYLPREDNISOLONE
     Indication: PROCTITIS
     Dosage: 60.0MG AS REQUIRED
     Route: 042
     Dates: start: 20210509, end: 20210509
  3. METHYLPREDNISOLONE. [Concomitant]
     Active Substance: METHYLPREDNISOLONE
     Indication: PROCTITIS
     Dosage: 40.0MG AS REQUIRED
     Route: 042
     Dates: start: 20210510, end: 20210510
  4. PREDNISON [Concomitant]
     Active Substance: PREDNISONE
     Indication: SYMPTOMATIC TREATMENT
     Route: 048
     Dates: start: 20210504, end: 20210504
  5. DYCLONINE HYDROCHLORIDE MUCILAGE [Concomitant]
     Dosage: 0.1G ONCE/SINGLE ADMINISTRATION
     Route: 048
     Dates: start: 20210423, end: 20210423
  6. PREDNISON [Concomitant]
     Active Substance: PREDNISONE
     Indication: PROCTITIS
     Route: 048
     Dates: start: 20210423, end: 20210429
  7. PREDNISON [Concomitant]
     Active Substance: PREDNISONE
     Indication: COLITIS
     Route: 048
     Dates: start: 20210505, end: 20210506
  8. PREDNISON [Concomitant]
     Active Substance: PREDNISONE
     Indication: SYMPTOMATIC TREATMENT
     Route: 048
     Dates: start: 20210511, end: 20210512
  9. PREDNISON [Concomitant]
     Active Substance: PREDNISONE
     Indication: COLITIS
     Route: 048
     Dates: start: 20210511, end: 20210512
  10. DURVALUMAB. [Suspect]
     Active Substance: DURVALUMAB
     Indication: HEPATOCELLULAR CARCINOMA
     Dosage: 1120.0MG ONCE/SINGLE ADMINISTRATION
     Route: 042
     Dates: start: 20210223, end: 20210223
  11. BEVACIZUMAB. [Suspect]
     Active Substance: BEVACIZUMAB
     Indication: HEPATOCELLULAR CARCINOMA
     Dosage: 1071.0MG ONCE/SINGLE ADMINISTRATION
     Route: 065
     Dates: start: 20210203, end: 20210203
  12. METHYLPREDNISOLONE. [Concomitant]
     Active Substance: METHYLPREDNISOLONE
     Indication: PROCTITIS
     Dosage: 60.0MG AS REQUIRED
     Route: 042
     Dates: start: 20210418, end: 20210423
  13. METHYLPREDNISOLONE. [Concomitant]
     Active Substance: METHYLPREDNISOLONE
     Indication: COLITIS
     Dosage: 40.0MG AS REQUIRED
     Route: 042
     Dates: start: 20210510, end: 20210510
  14. ELECTROLYTES NOS/CARBOHYDRATES NOS [Concomitant]
     Indication: ELECTROLYTE SUBSTITUTION THERAPY
     Route: 042
     Dates: start: 20210418, end: 20210426
  15. PREDNISON [Concomitant]
     Active Substance: PREDNISONE
     Indication: COLITIS
     Route: 048
     Dates: start: 20210504, end: 20210504
  16. PREDNISON [Concomitant]
     Active Substance: PREDNISONE
     Indication: PROCTITIS
     Route: 048
     Dates: start: 20210505, end: 20210506
  17. POLYETHYLENE GLYCOL ELECTROLYTES [Concomitant]
     Dosage: 147.2G ONCE/SINGLE ADMINISTRATION
     Route: 048
     Dates: start: 20210421, end: 20210421
  18. METHYLPREDNISOLONE. [Concomitant]
     Active Substance: METHYLPREDNISOLONE
     Indication: COLITIS
     Dosage: 60.0MG AS REQUIRED
     Route: 042
     Dates: start: 20210509, end: 20210509
  19. OMEPRAZOLE SODIUM [Concomitant]
     Active Substance: OMEPRAZOLE SODIUM
     Indication: PROPHYLAXIS
     Route: 042
     Dates: start: 20210418, end: 20210428
  20. OMEPRAZOLE SODIUM [Concomitant]
     Active Substance: OMEPRAZOLE SODIUM
     Indication: PROPHYLAXIS
     Route: 042
     Dates: start: 20210506, end: 20210512
  21. PREDNISON [Concomitant]
     Active Substance: PREDNISONE
     Indication: SYMPTOMATIC TREATMENT
     Route: 048
     Dates: start: 20210430, end: 20210503
  22. PREDNISON [Concomitant]
     Active Substance: PREDNISONE
     Indication: SYMPTOMATIC TREATMENT
     Route: 048
     Dates: start: 20210505, end: 20210506
  23. PREDNISON [Concomitant]
     Active Substance: PREDNISONE
     Indication: PROCTITIS
     Route: 048
     Dates: start: 20210511, end: 20210512
  24. POLYETHYLENE GLYCOL ELECTROLYTES [Concomitant]
     Dosage: 147.2G ONCE/SINGLE ADMINISTRATION
     Route: 048
     Dates: start: 20210420, end: 20210420
  25. DURVALUMAB. [Suspect]
     Active Substance: DURVALUMAB
     Indication: HEPATOCELLULAR CARCINOMA
     Dosage: 1120.0MG ONCE/SINGLE ADMINISTRATION
     Route: 042
     Dates: start: 20210317, end: 20210317
  26. BEVACIZUMAB. [Suspect]
     Active Substance: BEVACIZUMAB
     Indication: HEPATOCELLULAR CARCINOMA
     Dosage: 1071.0MG ONCE/SINGLE ADMINISTRATION
     Route: 065
     Dates: start: 20210223, end: 20210223
  27. METHYLPREDNISOLONE. [Concomitant]
     Active Substance: METHYLPREDNISOLONE
     Indication: COLITIS
     Dosage: 60.0MG AS REQUIRED
     Route: 042
     Dates: start: 20210418, end: 20210423
  28. METHYLPREDNISOLONE. [Concomitant]
     Active Substance: METHYLPREDNISOLONE
     Indication: COLITIS
     Dosage: 120.0MG AS REQUIRED
     Route: 042
     Dates: start: 20210508, end: 20210508
  29. PREDNISON [Concomitant]
     Active Substance: PREDNISONE
     Indication: COLITIS
     Route: 048
     Dates: start: 20210430, end: 20210503
  30. PREDNISON [Concomitant]
     Active Substance: PREDNISONE
     Indication: SYMPTOMATIC TREATMENT
     Route: 048
     Dates: start: 20210507, end: 20210507
  31. STUDY PROCEDURE [Suspect]
     Active Substance: INVESTIGATIONAL PRODUCT
     Indication: HEPATOCELLULAR CARCINOMA
     Route: 065
  32. DURVALUMAB. [Suspect]
     Active Substance: DURVALUMAB
     Indication: HEPATOCELLULAR CARCINOMA
     Dosage: 1120.0MG ONCE/SINGLE ADMINISTRATION
     Route: 042
     Dates: start: 20210114, end: 20210114
  33. OMEPRAZOLE SODIUM [Concomitant]
     Active Substance: OMEPRAZOLE SODIUM
     Indication: GASTRIC PH DECREASED
     Route: 042
     Dates: start: 20210418, end: 20210428
  34. OMEPRAZOLE SODIUM [Concomitant]
     Active Substance: OMEPRAZOLE SODIUM
     Indication: GASTRIC PH DECREASED
     Route: 042
     Dates: start: 20210506, end: 20210512
  35. PREDNISON [Concomitant]
     Active Substance: PREDNISONE
     Indication: SYMPTOMATIC TREATMENT
     Route: 048
     Dates: start: 20210423, end: 20210429
  36. PREDNISON [Concomitant]
     Active Substance: PREDNISONE
     Indication: COLITIS
     Route: 048
     Dates: start: 20210423, end: 20210429
  37. PREDNISON [Concomitant]
     Active Substance: PREDNISONE
     Indication: PROCTITIS
     Route: 048
     Dates: start: 20210430, end: 20210503
  38. PREDNISON [Concomitant]
     Active Substance: PREDNISONE
     Indication: COLITIS
     Route: 048
     Dates: start: 20210507, end: 20210507
  39. BEVACIZUMAB. [Suspect]
     Active Substance: BEVACIZUMAB
     Indication: HEPATOCELLULAR CARCINOMA
     Dosage: 1071.0MG ONCE/SINGLE ADMINISTRATION
     Route: 065
     Dates: start: 20210317, end: 20210317
  40. METHYLPREDNISOLONE. [Concomitant]
     Active Substance: METHYLPREDNISOLONE
     Indication: PROCTITIS
     Dosage: 80.0MG AS REQUIRED
     Route: 042
     Dates: start: 20210507, end: 20210507
  41. METHYLPREDNISOLONE. [Concomitant]
     Active Substance: METHYLPREDNISOLONE
     Indication: COLITIS
     Dosage: 80.0MG AS REQUIRED
     Route: 042
     Dates: start: 20210507, end: 20210507
  42. METHYLPREDNISOLONE. [Concomitant]
     Active Substance: METHYLPREDNISOLONE
     Indication: PROCTITIS
     Dosage: 120.0MG AS REQUIRED
     Route: 042
     Dates: start: 20210508, end: 20210508
  43. PREDNISON [Concomitant]
     Active Substance: PREDNISONE
     Indication: PROCTITIS
     Route: 048
     Dates: start: 20210507, end: 20210507
  44. DURVALUMAB. [Suspect]
     Active Substance: DURVALUMAB
     Indication: HEPATOCELLULAR CARCINOMA
     Dosage: 1120.0MG ONCE/SINGLE ADMINISTRATION
     Route: 042
     Dates: start: 20210203, end: 20210203
  45. BEVACIZUMAB. [Suspect]
     Active Substance: BEVACIZUMAB
     Indication: HEPATOCELLULAR CARCINOMA
     Dosage: 1071.0MG ONCE/SINGLE ADMINISTRATION
     Route: 065
     Dates: start: 20210114, end: 20210114
  46. PREDNISON [Concomitant]
     Active Substance: PREDNISONE
     Indication: PROCTITIS
     Route: 048
     Dates: start: 20210504, end: 20210504
  47. LANSOPRAZOLE. [Concomitant]
     Active Substance: LANSOPRAZOLE
     Indication: PROPHYLAXIS
     Dosage: 30.0MG AS REQUIRED
     Route: 048
     Dates: start: 20210426, end: 20210505
  48. DYCLONINE HYDROCHLORIDE MUCILAGE [Concomitant]
     Dosage: 0.1G ONCE/SINGLE ADMINISTRATION
     Route: 048
     Dates: start: 20210420, end: 20210420
  49. SALINE [Concomitant]
     Active Substance: SODIUM CHLORIDE
     Indication: RHINORRHOEA
     Dosage: 1 GUSH
     Dates: start: 20210425, end: 20210428

REACTIONS (1)
  - Gastrointestinal haemorrhage [Recovered/Resolved]

NARRATIVE: CASE EVENT DATE: 20210504
